FAERS Safety Report 25316717 (Version 2)
Quarter: 2025Q2

REPORT INFORMATION
  Report Type: Report from Study
  Country: US (occurrence: US)
  Receive Date: 20250515
  Receipt Date: 20250520
  Transmission Date: 20250717
  Serious: Yes (Other)
  Sender: ALEXION PHARMACEUTICALS
  Company Number: US-AstraZeneca-CH-00867661AP

PATIENT

DRUGS (1)
  1. BUDESONIDE\FORMOTEROL\GLYCOPYRRONIUM [Suspect]
     Active Substance: BUDESONIDE\FORMOTEROL\GLYCOPYRRONIUM
     Dosage: 160 MICROGRAM, BID
     Route: 065

REACTIONS (9)
  - COVID-19 [Unknown]
  - Pneumonia [Unknown]
  - Atrial fibrillation [Unknown]
  - Device defective [Unknown]
  - Incorrect dose administered [Unknown]
  - Drug dose omission by device [Unknown]
  - Accidental overdose [Unknown]
  - Crying [Unknown]
  - Emotional disorder [Unknown]
